FAERS Safety Report 8204205-3 (Version None)
Quarter: 2012Q1

REPORT INFORMATION
  Report Type: 
  Country: None (occurrence: None)
  Receive Date: 20120313
  Receipt Date: 20120306
  Transmission Date: 20120608
  Serious: Yes (Other)
  Sender: FDA-Public Use
  Company Number: BR-SANOFI-AVENTIS-2012SA014370

PATIENT
  Age: 32 Year
  Sex: Female

DRUGS (9)
  1. ALLEGRA-D 12 HOUR [Suspect]
     Indication: NASAL CONGESTION
     Route: 065
  2. DRAMIN [Suspect]
     Route: 065
  3. SCOPOLAMINE [Suspect]
     Route: 065
  4. METAMIZOLE [Suspect]
     Route: 065
  5. LORATADINE [Suspect]
     Route: 065
  6. METOCLOPRAMIDE [Suspect]
     Route: 065
  7. ALL OTHER THERAPEUTIC PRODUCTS [Suspect]
     Route: 065
  8. ALLEGRA-D 12 HOUR [Suspect]
     Route: 065
  9. ACETAMINOPHEN [Suspect]
     Route: 065

REACTIONS (2)
  - MATERNAL EXPOSURE DURING PREGNANCY [None]
  - HAEMOLYTIC ANAEMIA [None]
